FAERS Safety Report 15340239 (Version 2)
Quarter: 2018Q4

REPORT INFORMATION
  Report Type: Spontaneous
  Country: US (occurrence: US)
  Receive Date: 20180831
  Receipt Date: 20181019
  Transmission Date: 20190204
  Serious: Yes (Death, Hospitalization)
  Sender: FDA-Public Use
  Company Number: US-JNJFOC-20180842067

PATIENT
  Age: 73 Year
  Sex: Female

DRUGS (3)
  1. XARELTO [Suspect]
     Active Substance: RIVAROXABAN
     Indication: ATRIAL FIBRILLATION
     Route: 048
     Dates: start: 20160207, end: 20170207
  2. XARELTO [Suspect]
     Active Substance: RIVAROXABAN
     Indication: THROMBOSIS PROPHYLAXIS
     Route: 048
     Dates: start: 20160207, end: 20170207
  3. XARELTO [Suspect]
     Active Substance: RIVAROXABAN
     Indication: CEREBROVASCULAR ACCIDENT PROPHYLAXIS
     Route: 048
     Dates: start: 20160207, end: 20170207

REACTIONS (5)
  - Cerebrovascular accident [Fatal]
  - Ischaemic stroke [Unknown]
  - Cerebral haemorrhage [Unknown]
  - Haemorrhagic stroke [Unknown]
  - Respiratory failure [Unknown]

NARRATIVE: CASE EVENT DATE: 20170208
